FAERS Safety Report 24566448 (Version 1)
Quarter: 2024Q4

REPORT INFORMATION
  Report Type: Spontaneous
  Country: US (occurrence: None)
  Receive Date: 20241029
  Receipt Date: 20241029
  Transmission Date: 20250114
  Serious: No
  Sender: Public
  Company Number: None

PATIENT
  Age: 39 Year
  Sex: Male

DRUGS (2)
  1. TRAZODONE HCL [Suspect]
     Active Substance: TRAZODONE HYDROCHLORIDE
     Indication: Insomnia
     Dosage: 100.00 MG AS NEEDED ORAL ?
     Route: 048
     Dates: start: 20240501, end: 20240502
  2. HYDROXYZINE HYDROCHLORIDE [Suspect]
     Active Substance: HYDROXYZINE HYDROCHLORIDE
     Dosage: 50.00 MG AS NEEDED ORAL ?
     Route: 048
     Dates: start: 20240501, end: 20240502

REACTIONS (1)
  - Hypotension [None]

NARRATIVE: CASE EVENT DATE: 20240502
